FAERS Safety Report 21033922 (Version 1)
Quarter: 2022Q3

REPORT INFORMATION
  Report Type: Spontaneous
  Country: US (occurrence: None)
  Receive Date: 20220701
  Receipt Date: 20220701
  Transmission Date: 20221026
  Serious: Yes (Disabling, Other)
  Sender: FDA-Public Use
  Company Number: None

PATIENT
  Age: 24 Year
  Sex: Female
  Weight: 65.25 kg

DRUGS (3)
  1. PAXLOVID [Suspect]
     Active Substance: NIRMATRELVIR\RITONAVIR
     Indication: COVID-19
     Dates: start: 20220615, end: 20220620
  2. LAMOTRIGINE [Concomitant]
     Active Substance: LAMOTRIGINE
  3. lithium bicarbonate [Concomitant]

REACTIONS (5)
  - Rebound effect [None]
  - SARS-CoV-2 test positive [None]
  - Oropharyngeal pain [None]
  - Upper respiratory tract congestion [None]
  - Fatigue [None]

NARRATIVE: CASE EVENT DATE: 20220626
